FAERS Safety Report 8214320-6 (Version None)
Quarter: 2012Q1

REPORT INFORMATION
  Report Type: 
  Country: None (occurrence: None)
  Receive Date: 20120316
  Receipt Date: 20120307
  Transmission Date: 20120608
  Serious: Yes (Hospitalization, Other)
  Sender: FDA-Public Use
  Company Number: AU-JNJFOC-20120102804

PATIENT
  Sex: Female

DRUGS (2)
  1. BYETTA [Concomitant]
  2. STELARA [Suspect]
     Indication: PSORIASIS
     Route: 058
     Dates: start: 20110918, end: 20110918

REACTIONS (3)
  - THROMBOSIS [None]
  - SKIN ULCER [None]
  - DRUG INEFFECTIVE [None]
